FAERS Safety Report 4848713-1 (Version None)
Quarter: 2005Q4

REPORT INFORMATION
  Report Type: 
  Country: None (occurrence: None)
  Receive Date: 20051208
  Receipt Date: 20051206
  Transmission Date: 20060501
  Serious: Yes (Death, Life-Threatening, Hospitalization)
  Sender: FDA-Public Use
  Company Number: FR-BRISTOL-MYERS SQUIBB COMPANY-13206784

PATIENT
  Age: 81 Year
  Sex: Female

DRUGS (4)
  1. COUMADIN [Suspect]
     Route: 048
  2. LEVOTHYROX [Concomitant]
  3. KALEORID [Concomitant]
  4. LASILIX [Concomitant]

REACTIONS (4)
  - CARDIAC FAILURE ACUTE [None]
  - MELAENA [None]
  - PROTHROMBIN LEVEL DECREASED [None]
  - RENAL FAILURE ACUTE [None]
